FAERS Safety Report 6409292-0 (Version None)
Quarter: 2009Q4

REPORT INFORMATION
  Report Type: 
  Country: None (occurrence: None)
  Receive Date: 20091021
  Receipt Date: 20091013
  Transmission Date: 20100525
  Serious: Yes (Hospitalization, Other)
  Sender: FDA-Public Use
  Company Number: US-AMGEN-QUU369060

PATIENT
  Sex: Female

DRUGS (2)
  1. ENBREL [Suspect]
     Indication: RHEUMATOID ARTHRITIS
     Route: 058
     Dates: start: 20050512
  2. METHOTREXATE [Concomitant]
     Route: 048

REACTIONS (8)
  - BLISTER [None]
  - INFECTION [None]
  - JOINT DESTRUCTION [None]
  - MUSCLE GRAFT [None]
  - RASH PRURITIC [None]
  - SKIN GRAFT [None]
  - SOFT TISSUE NECROSIS [None]
  - STAPHYLOCOCCAL INFECTION [None]
